FAERS Safety Report 5009821-8 (Version None)
Quarter: 2006Q2

REPORT INFORMATION
  Report Type: 
  Country: None (occurrence: None)
  Receive Date: 20060522
  Receipt Date: 20060522
  Transmission Date: 20061013
  Serious: Yes (Death)
  Sender: FDA-Public Use
  Company Number: None

PATIENT
  Age: 15 Year
  Sex: Female
  Weight: 49.8957 kg

DRUGS (2)
  1. PAXIL [Suspect]
     Indication: DEPRESSION
     Dates: start: 19960901, end: 19980501
  2. ZOLOFT [Concomitant]

REACTIONS (9)
  - ABNORMAL BEHAVIOUR [None]
  - BRAIN DAMAGE [None]
  - COMPLETED SUICIDE [None]
  - DISTURBANCE IN ATTENTION [None]
  - EATING DISORDER [None]
  - EUPHORIC MOOD [None]
  - INTENTIONAL SELF-INJURY [None]
  - OVERDOSE [None]
  - PAIN [None]
